FAERS Safety Report 20406878 (Version 1)
Quarter: 2022Q1

REPORT INFORMATION
  Report Type: Spontaneous
  Country: US (occurrence: None)
  Receive Date: 20220131
  Receipt Date: 20220131
  Transmission Date: 20220423
  Serious: Yes (Hospitalization)
  Sender: FDA-Public Use
  Company Number: US-ROCHE-3009819

PATIENT
  Age: 64 Year
  Weight: 105.8 kg

DRUGS (13)
  1. TOCILIZUMAB [Suspect]
     Active Substance: TOCILIZUMAB
     Indication: COVID-19
     Dosage: FREQUENCY: ONCE
     Route: 042
     Dates: start: 20211230, end: 20211230
  2. LEVOFLOXACIN [Concomitant]
     Active Substance: LEVOFLOXACIN
     Dates: start: 20220117
  3. DEXAMETHASONE [Concomitant]
     Active Substance: DEXAMETHASONE
     Dates: start: 20211230, end: 20220109
  4. NIMBEX [Concomitant]
     Active Substance: CISATRACURIUM BESYLATE
     Dosage: NIMBEX 5MC
  5. AMLODIPINE [Concomitant]
     Active Substance: AMLODIPINE BESYLATE
  6. AMIODARONE [Concomitant]
     Active Substance: AMIODARONE
     Dosage: 200MG QD TABS
  7. LEVAQUIN [Concomitant]
     Active Substance: LEVOFLOXACIN
  8. PREDNISONE [Concomitant]
     Active Substance: PREDNISONE
     Dosage: 5MG PO QD
     Route: 048
  9. HEPARIN [Concomitant]
     Active Substance: HEPARIN SODIUM
     Dosage: HEPARIN DRIP
  10. FLOLAN [Concomitant]
     Active Substance: EPOPROSTENOL SODIUM
  11. REMDESIVIR [Concomitant]
     Active Substance: REMDESIVIR
     Dates: start: 20211230, end: 20220103
  12. LANTUS [Concomitant]
     Active Substance: INSULIN GLARGINE
     Dosage: 10U BID
  13. LASIX [Concomitant]
     Active Substance: FUROSEMIDE

REACTIONS (3)
  - Tachycardia [Unknown]
  - Hypotension [Unknown]
  - Off label use [Unknown]

NARRATIVE: CASE EVENT DATE: 20220116
